FAERS Safety Report 20934473 (Version 1)
Quarter: 2022Q2

REPORT INFORMATION
  Report Type: Spontaneous
  Country: US (occurrence: US)
  Receive Date: 20220608
  Receipt Date: 20220608
  Transmission Date: 20220720
  Serious: No
  Sender: FDA-Public Use
  Company Number: US-009507513-2206USA000621

PATIENT
  Age: 71 Year
  Sex: Female

DRUGS (3)
  1. KEYTRUDA [Suspect]
     Active Substance: PEMBROLIZUMAB
     Indication: Endometrial cancer
     Dosage: 200 MILLIGRAM
     Dates: start: 20220110
  2. KEYTRUDA [Suspect]
     Active Substance: PEMBROLIZUMAB
     Dosage: DECREASED FROM 200 MG TO 150 MG
     Dates: start: 2022
  3. LENVATINIB MESYLATE [Suspect]
     Active Substance: LENVATINIB MESYLATE
     Indication: Endometrial cancer
     Dosage: 10 MILLIGRAM, ONCE DAILY (QD)
     Route: 048
     Dates: start: 20220110

REACTIONS (4)
  - Dysphonia [Not Recovered/Not Resolved]
  - Stomatitis [Not Recovered/Not Resolved]
  - Rash [Not Recovered/Not Resolved]
  - Incorrect dose administered [Unknown]

NARRATIVE: CASE EVENT DATE: 20220101
